FAERS Safety Report 9503551 (Version 2)
Quarter: 2013Q4

REPORT INFORMATION
  Report Type: Spontaneous
  Country: FR (occurrence: FR)
  Receive Date: 20130906
  Receipt Date: 20131213
  Transmission Date: 20140711
  Serious: Yes (Other)
  Sender: FDA-Public Use
  Company Number: FR-AMGEN-FRASP2013062354

PATIENT
  Age: 29 Year
  Sex: Female
  Weight: 69 kg

DRUGS (3)
  1. ENBREL [Suspect]
     Indication: ANKYLOSING SPONDYLITIS
     Dosage: 50 MG, QWK
     Route: 058
     Dates: end: 20130801
  2. IXPRIM [Concomitant]
     Indication: ANKYLOSING SPONDYLITIS
     Dosage: 2 DF, DAILY
     Route: 048
     Dates: end: 20130801
  3. ARCOXIA [Concomitant]
     Indication: ANKYLOSING SPONDYLITIS
     Dosage: 60 MG, 1X/DAY
     Route: 048
     Dates: end: 20130801

REACTIONS (1)
  - Ankylosing spondylitis [Unknown]
